FAERS Safety Report 21584217 (Version 1)
Quarter: 2022Q4

REPORT INFORMATION
  Report Type: Spontaneous
  Country: PL (occurrence: PL)
  Receive Date: 20221111
  Receipt Date: 20221111
  Transmission Date: 20230112
  Serious: Yes (Other)
  Sender: FDA-Public Use
  Company Number: PL-MLMSERVICE-20221010-3848974-1

PATIENT
  Age: 18 Year
  Sex: Male

DRUGS (6)
  1. OLANZAPINE [Suspect]
     Active Substance: OLANZAPINE
     Indication: Schizophrenia
     Dosage: 5 MILLIGRAM
     Route: 065
  2. OLANZAPINE [Suspect]
     Active Substance: OLANZAPINE
     Dosage: 15 MILLIGRAM, ONCE A DAY
     Route: 065
  3. AMISULPRIDE [Concomitant]
     Active Substance: AMISULPRIDE
     Indication: Antipsychotic therapy
     Dosage: UNK
     Route: 065
  4. LORAZEPAM [Concomitant]
     Active Substance: LORAZEPAM
     Indication: Antipsychotic therapy
     Dosage: 10 MILLIGRAM, ONCE A DAY
     Route: 065
  5. LORAZEPAM [Concomitant]
     Active Substance: LORAZEPAM
     Dosage: 7.5 MILLIGRAM, ONCE A DAY
     Route: 048
  6. LORAZEPAM [Concomitant]
     Active Substance: LORAZEPAM
     Dosage: 2 MILLIGRAM, ONCE A DAY
     Route: 065

REACTIONS (2)
  - Weight increased [Unknown]
  - Cognitive disorder [Unknown]
